FAERS Safety Report 17459869 (Version 1)
Quarter: 2020Q1

REPORT INFORMATION
  Report Type: Spontaneous
  Country: US (occurrence: US)
  Receive Date: 20200226
  Receipt Date: 20200226
  Transmission Date: 20200409
  Serious: Yes (Other)
  Sender: FDA-Public Use
  Company Number: US-MYLANLABS-2020M1021145

PATIENT
  Age: 62 Year
  Sex: Male

DRUGS (4)
  1. OCTREOTIDE. [Suspect]
     Active Substance: OCTREOTIDE
     Indication: PANCREATITIS CHRONIC
  2. ENOXAPARIN [Concomitant]
     Active Substance: ENOXAPARIN
     Indication: PSEUDOCYST
     Route: 065
  3. OCTREOTIDE. [Suspect]
     Active Substance: OCTREOTIDE
     Indication: ASCITES
     Route: 058
  4. ENOXAPARIN [Concomitant]
     Active Substance: ENOXAPARIN
     Indication: PORTAL VEIN THROMBOSIS

REACTIONS (1)
  - Drug ineffective for unapproved indication [Unknown]
